FAERS Safety Report 9874373 (Version 2)
Quarter: 2014Q1

REPORT INFORMATION
  Report Type: Other
  Country: US (occurrence: US)
  Receive Date: 20140206
  Receipt Date: 20140206
  Transmission Date: 20141002
  Serious: No
  Sender: FDA-Public Use
  Company Number: US-ACORDA-ACO_35065_2013

PATIENT
  Sex: Female
  Weight: 50.34 kg

DRUGS (16)
  1. AMPYRA [Suspect]
     Indication: GAIT DISTURBANCE
     Dosage: 10 MG, BID
     Route: 048
  2. AMPYRA [Suspect]
     Dosage: 10 MG, BID
     Route: 048
     Dates: start: 2011
  3. COPAXONE [Suspect]
     Indication: MULTIPLE SCLEROSIS
     Dosage: 20 MG/ML
     Route: 065
  4. COPAXONE [Suspect]
     Dosage: 20 MG/ML
     Route: 065
     Dates: start: 2009
  5. MIRTAZAPINE [Concomitant]
     Indication: DEPRESSION
     Dosage: 30 MG, QD
  6. PROVENTIL [Concomitant]
     Indication: ASTHMA
     Dosage: 90 ?G, PRN
     Route: 065
  7. TRAZODONE HCL [Concomitant]
     Indication: SLEEP DISORDER
     Dosage: 50 MG, QD HS
     Route: 065
  8. TRAZODONE HCL [Concomitant]
     Indication: SLEEP DISORDER
  9. DANTROLENE SODIUM [Concomitant]
     Indication: MUSCLE SPASMS
     Dosage: 100 MG, TID
     Route: 065
  10. SYMBICORT [Concomitant]
     Indication: ASTHMA
     Dosage: 160-4.5 UNK, BID
     Route: 065
  11. METHYLPREDNISOLONE [Concomitant]
     Indication: PRODUCT USED FOR UNKNOWN INDICATION
     Dosage: 4 MG, UNK
  12. MULTIVITAMIN [Concomitant]
     Indication: PRODUCT USED FOR UNKNOWN INDICATION
     Dosage: 1 DF, QD
     Route: 065
  13. CENESTIN [Concomitant]
     Indication: MUSCLE SPASMS
     Dosage: 1.25 MG, UNK
  14. CENESTIN [Concomitant]
     Indication: PRODUCT USED FOR UNKNOWN INDICATION
  15. CARISOPRODOL [Concomitant]
     Indication: MUSCLE SPASMS
     Dosage: 350 MG, BID
     Route: 065
  16. IBUPROFEN [Concomitant]
     Indication: PRODUCT USED FOR UNKNOWN INDICATION
     Dosage: 200 MG, UNK

REACTIONS (4)
  - Palpitations [Recovered/Resolved]
  - Arrhythmia [Recovered/Resolved]
  - Abdominal pain [Unknown]
  - Injection site mass [Unknown]
